FAERS Safety Report 7680687-0 (Version None)
Quarter: 2011Q3

REPORT INFORMATION
  Report Type: 
  Country: None (occurrence: None)
  Receive Date: 20110812
  Receipt Date: 20110802
  Transmission Date: 20111222
  Serious: Yes (Hospitalization, Other)
  Sender: FDA-Public Use
  Company Number: US-MYLANLABS-2011S1013132

PATIENT
  Age: 39 Year
  Sex: Female

DRUGS (9)
  1. LAMICTAL [Concomitant]
     Indication: PAIN
  2. FENTANYL-100 [Suspect]
     Indication: PAIN
     Dosage: CHANGED Q72H
     Route: 062
     Dates: start: 20110501, end: 20110701
  3. FENTANYL-100 [Suspect]
     Dosage: CHANGED Q72H
     Route: 062
     Dates: start: 20110701, end: 20110801
  4. PREDNISONE [Concomitant]
     Dosage: FOR ONE WEEK.
  5. FENTANYL-100 [Suspect]
     Dates: start: 20110501, end: 20110501
  6. WELLBUTRIN [Concomitant]
  7. KLONOPIN [Concomitant]
  8. FENTANYL-100 [Suspect]
     Dosage: CHANGED Q72H
     Route: 062
     Dates: start: 20110801
  9. ZANAFLEX [Concomitant]

REACTIONS (16)
  - DECREASED APPETITE [None]
  - HYPERHIDROSIS [None]
  - DIZZINESS [None]
  - DYSKINESIA [None]
  - MEMORY IMPAIRMENT [None]
  - DEPRESSED LEVEL OF CONSCIOUSNESS [None]
  - HEADACHE [None]
  - HALLUCINATION, VISUAL [None]
  - DRUG INEFFECTIVE [None]
  - DRY MOUTH [None]
  - PAIN [None]
  - INSOMNIA [None]
  - FATIGUE [None]
  - DISORIENTATION [None]
  - NAUSEA [None]
  - PRURITUS [None]
